FAERS Safety Report 6183111-2 (Version None)
Quarter: 2009Q2

REPORT INFORMATION
  Report Type: 
  Country: None (occurrence: None)
  Receive Date: 20090506
  Receipt Date: 20090420
  Transmission Date: 20091009
  Serious: Yes (Death, Hospitalization)
  Sender: FDA-Public Use
  Company Number: 8045438

PATIENT
  Age: 13 Year
  Sex: Female

DRUGS (3)
  1. PREDNISOLONE [Suspect]
     Indication: SYSTEMIC LUPUS ERYTHEMATOSUS
     Dosage: PO
     Route: 048
  2. AZATHIOPRINE [Suspect]
     Indication: SYSTEMIC LUPUS ERYTHEMATOSUS
  3. ACYCLOVIR [Concomitant]

REACTIONS (17)
  - ASPERGILLOSIS [None]
  - BACK PAIN [None]
  - BRONCHOPULMONARY ASPERGILLOSIS [None]
  - CANDIDIASIS [None]
  - CARDIAC DISORDER [None]
  - CEREBRAL ASPERGILLOSIS [None]
  - CHOLESTASIS [None]
  - DISSEMINATED INTRAVASCULAR COAGULATION [None]
  - HEPATIC FAILURE [None]
  - HEPATIC NECROSIS [None]
  - HERPES ZOSTER [None]
  - HISTIOCYTOSIS HAEMATOPHAGIC [None]
  - MENINGITIS FUNGAL [None]
  - MULTI-ORGAN FAILURE [None]
  - PLEURAL EFFUSION [None]
  - SYSTEMIC MYCOSIS [None]
  - VARICELLA [None]
